FAERS Safety Report 10076067 (Version 1)
Quarter: 2014Q2

REPORT INFORMATION
  Report Type: Spontaneous
  Country: US (occurrence: US)
  Receive Date: 20140414
  Receipt Date: 20140414
  Transmission Date: 20141212
  Serious: No
  Sender: FDA-Public Use
  Company Number: US-PFIZER INC-2014101239

PATIENT
  Sex: Female

DRUGS (1)
  1. XELJANZ [Suspect]
     Dosage: 5 MG, DAILY
     Dates: start: 20140401, end: 20140402

REACTIONS (3)
  - Malaise [Unknown]
  - Discomfort [Unknown]
  - Hypertension [Unknown]
